FAERS Safety Report 15245858 (Version 1)
Quarter: 2018Q3

REPORT INFORMATION
  Report Type: Spontaneous
  Country: DE (occurrence: DE)
  Receive Date: 20180806
  Receipt Date: 20180806
  Transmission Date: 20181010
  Serious: Yes (Other)
  Sender: FDA-Public Use
  Company Number: DE-MYLANLABS-2018M1057831

PATIENT
  Age: 39 Year
  Sex: Female

DRUGS (4)
  1. GENTAMICIN. [Concomitant]
     Active Substance: GENTAMICIN
     Indication: POST PROCEDURAL INFECTION
     Dosage: 150 MG, QD
     Route: 042
  2. CIPROFLOXACIN. [Suspect]
     Active Substance: CIPROFLOXACIN
     Indication: OTITIS MEDIA
     Dosage: 800 MG, QD
     Route: 042
  3. CIPROFLOXACIN. [Suspect]
     Active Substance: CIPROFLOXACIN
     Indication: SEPSIS
  4. CIPROFLOXACIN. [Suspect]
     Active Substance: CIPROFLOXACIN
     Indication: PSEUDOMONAS INFECTION
     Dosage: UNK

REACTIONS (3)
  - Tendon disorder [Unknown]
  - Tendon rupture [Unknown]
  - Necrosis [Unknown]
